FAERS Safety Report 8730217 (Version 2)
Quarter: 2012Q4

REPORT INFORMATION
  Report Type: 
  Country: AU (occurrence: AU)
  Receive Date: 20120817
  Receipt Date: 20120831
  Transmission Date: 20130627
  Serious: Yes (Death, Hospitalization, Other)
  Sender: FDA-Public Use
  Company Number: PHHY2012AU070415

PATIENT
  Age: 47 Year
  Sex: Male

DRUGS (10)
  1. GILENYA [Suspect]
     Dates: start: 20110923
  2. VITAMIN B12 FOR INJECTION [Concomitant]
  3. AMOXYCILLIN [Concomitant]
     Dosage: 875 mg, BID
  4. ESCITALOPRAM [Concomitant]
     Indication: MOOD ALTERED
     Dosage: 20 mg, BID
  5. PARACETAMOL [Concomitant]
     Indication: PAIN
     Dosage: 500 mg, QID
  6. MOMETASONE [Concomitant]
     Indication: DERMATITIS
     Dosage: 15 g, QD
  7. STEMETIL [Concomitant]
     Indication: NAUSEA
     Dosage: 5 mg, TID
  8. NORMISON [Concomitant]
     Indication: SLEEP DISORDER
     Dosage: 10 mg, PRN
  9. BETAMETHASONE VALERATE [Concomitant]
     Dosage: 15 g, BID
  10. PARACETAMOL + CODEINE [Concomitant]

REACTIONS (25)
  - Blood lactate dehydrogenase increased [Unknown]
  - Blood cholesterol increased [Unknown]
  - Blood uric acid increased [Unknown]
  - Haemoglobin decreased [Unknown]
  - Red blood cell count decreased [Unknown]
  - Haematocrit decreased [Unknown]
  - Blood albumin decreased [Unknown]
  - C-reactive protein increased [Unknown]
  - Sinus bradycardia [Unknown]
  - Liver function test abnormal [Unknown]
  - Aspartate aminotransferase increased [Unknown]
  - Alanine aminotransferase increased [Unknown]
  - Gamma-glutamyltransferase increased [Unknown]
  - Blood alkaline phosphatase increased [Unknown]
  - Blood triglycerides increased [Unknown]
  - Lymphocyte count decreased [Unknown]
  - Myocardial infarction [Fatal]
  - Dehydration [Unknown]
  - Lobar pneumonia [Recovering/Resolving]
  - Dyspnoea [Recovering/Resolving]
  - Pyrexia [Recovering/Resolving]
  - Chest discomfort [Recovering/Resolving]
  - Productive cough [Recovering/Resolving]
  - Sputum abnormal [Recovering/Resolving]
  - Arteriosclerosis [Unknown]
